FAERS Safety Report 8771026 (Version 2)
Quarter: 2012Q4

REPORT INFORMATION
  Report Type: 
  Country: US (occurrence: US)
  Receive Date: 20120906
  Receipt Date: 20120921
  Transmission Date: 20130627
  Serious: No
  Sender: FDA-Public Use
  Company Number: US-PFIZER INC-2012215215

PATIENT
  Age: 87 Year
  Sex: Male
  Weight: 67.12 kg

DRUGS (10)
  1. VIAGRA [Suspect]
     Indication: ERECTILE DYSFUNCTION
     Dosage: 50 mg, as needed
     Route: 048
     Dates: start: 20120828
  2. TOPROL [Concomitant]
     Dosage: 25 mg, 2x/day
     Route: 048
  3. LISINOPRIL [Concomitant]
     Dosage: 10 mg, 1x/day
     Route: 048
  4. ZOCOR [Concomitant]
     Dosage: 20 mg, 1x/day
     Route: 048
  5. PLAVIX [Concomitant]
     Dosage: 75 mg, 1x/day
     Route: 048
  6. PROTONIX [Concomitant]
     Dosage: 40 mg, 1x/day
     Route: 048
  7. ASPIRIN [Concomitant]
     Dosage: 81 mg, 1x/day
     Route: 048
  8. AVODART [Concomitant]
     Dosage: 0.5 mg, 1x/day
     Route: 048
  9. TAMSULOSIN [Concomitant]
     Dosage: 4 mg, 1x/day
     Route: 048
  10. AMITRIPTYLINE [Concomitant]
     Dosage: 25 mg, 1x/day
     Route: 048
     Dates: end: 201208

REACTIONS (2)
  - Drug effect delayed [Unknown]
  - Drug ineffective [Unknown]
